FAERS Safety Report 4549466-7 (Version None)
Quarter: 2005Q1

REPORT INFORMATION
  Report Type: 
  Country: None (occurrence: None)
  Receive Date: 20050106
  Receipt Date: 20041220
  Transmission Date: 20050727
  Serious: Yes (Hospitalization)
  Sender: FDA-Public Use
  Company Number: 2004-DE-06288GD

PATIENT
  Age: 4 Month
  Sex: Male

DRUGS (5)
  1. IPRATROPIUM BROMIDE [Suspect]
     Indication: BRONCHOSPASM
     Dosage: IH
     Route: 055
  2. ALBUTEROL [Suspect]
     Indication: BRONCHOSPASM
     Dosage: IH
     Route: 055
  3. EPINEPHRINE [Suspect]
     Indication: BRONCHOSPASM
     Dosage: SC
     Route: 058
  4. SEDATIVES (HYPNOTICS AND SEDATIVES) [Suspect]
     Indication: BRONCHOSPASM
  5. MUSCLE RELAXANTS (MUSCLE RELAXANTS) [Suspect]
     Indication: BRONCHOSPASM

REACTIONS (4)
  - BRONCHOSPASM [None]
  - CONDITION AGGRAVATED [None]
  - HYPERCAPNIA [None]
  - HYPOXIA [None]
